FAERS Safety Report 13765215 (Version 1)
Quarter: 2017Q3

REPORT INFORMATION
  Report Type: Spontaneous
  Country: HR (occurrence: HR)
  Receive Date: 20170718
  Receipt Date: 20170718
  Transmission Date: 20171127
  Serious: Yes (Other)
  Sender: FDA-Public Use
  Company Number: HR-TEVA-786288ACC

PATIENT
  Age: 65 Year
  Sex: Female
  Weight: 80 kg

DRUGS (4)
  1. NORMABEL [Concomitant]
     Active Substance: DIAZEPAM
     Indication: MOOD DISORDER DUE TO A GENERAL MEDICAL CONDITION
     Dosage: 15 MILLIGRAM DAILY;
     Route: 048
     Dates: start: 20111031
  2. SERPENTIL [Suspect]
     Active Substance: ESCITALOPRAM OXALATE
     Indication: MOOD DISORDER DUE TO A GENERAL MEDICAL CONDITION
     Dosage: 15 MILLIGRAM DAILY;
     Route: 048
     Dates: start: 20170110
  3. BRUFEN  POWDERS, EFFERVESCENT POWDERS/GRANULES [Concomitant]
     Indication: SPINAL PAIN
     Dosage: 600 MILLIGRAM DAILY;
     Route: 048
     Dates: start: 20170328
  4. ROSIX [Concomitant]
     Indication: DYSLIPIDAEMIA
     Dosage: 10 MILLIGRAM DAILY;
     Route: 048
     Dates: start: 20141120

REACTIONS (6)
  - Hallucination, auditory [Recovered/Resolved]
  - Tinnitus [Recovered/Resolved]
  - Pruritus [Recovered/Resolved]
  - Vision blurred [Recovered/Resolved]
  - Bone pain [Recovered/Resolved]
  - Myalgia [Recovered/Resolved]

NARRATIVE: CASE EVENT DATE: 20170328
